FAERS Safety Report 6521122-5 (Version None)
Quarter: 2009Q4

REPORT INFORMATION
  Report Type: 
  Country: None (occurrence: None)
  Receive Date: 20091222
  Receipt Date: 20091215
  Transmission Date: 20100525
  Serious: Yes (Hospitalization)
  Sender: FDA-Public Use
  Company Number: 2009AL007802

PATIENT
  Age: 70 Year
  Sex: Male

DRUGS (4)
  1. HALOPERIDOL LACTATE [Suspect]
     Indication: RESTLESSNESS
     Dosage: 2 MG; Q4H;
  2. DEPAKOTE [Concomitant]
  3. AMLODIPINE [Concomitant]
  4. LANSOPRAZOLE [Concomitant]

REACTIONS (5)
  - BLOOD URINE PRESENT [None]
  - METABOLIC ACIDOSIS [None]
  - NEUROLEPTIC MALIGNANT SYNDROME [None]
  - RENAL FAILURE ACUTE [None]
  - RHABDOMYOLYSIS [None]
